FAERS Safety Report 4629409-8 (Version None)
Quarter: 2005Q2

REPORT INFORMATION
  Report Type: 
  Country: None (occurrence: None)
  Receive Date: 20050405
  Receipt Date: 20050321
  Transmission Date: 20051028
  Serious: Yes (Hospitalization)
  Sender: FDA-Public Use
  Company Number: 2005GB00602

PATIENT
  Age: 57 Year
  Sex: Female
  Weight: 100 kg

DRUGS (9)
  1. MEROPENEM [Suspect]
     Indication: NEPHRECTOMY
     Dosage: 1 G TID IV
     Route: 042
     Dates: start: 20050206, end: 20050206
  2. MEROPENEM [Suspect]
     Indication: RENAL ABSCESS
     Dosage: 1 G TID IV
     Route: 042
     Dates: start: 20050206, end: 20050206
  3. SIMVASTATIN [Concomitant]
  4. METFORMIN [Concomitant]
  5. CO-CODAMOL [Concomitant]
  6. PARACETAMOL [Concomitant]
  7. DICLOFENAC SODIUM [Concomitant]
  8. IBUPROFEN [Concomitant]
  9. CIPROFLOXACIN [Concomitant]

REACTIONS (3)
  - PYREXIA [None]
  - SKIN SWELLING [None]
  - URTICARIA [None]
